FAERS Safety Report 20264033 (Version 1)
Quarter: 2021Q4

REPORT INFORMATION
  Report Type: Spontaneous
  Country: CA (occurrence: CA)
  Receive Date: 20211231
  Receipt Date: 20211231
  Transmission Date: 20220303
  Serious: Yes (Hospitalization)
  Sender: FDA-Public Use
  Company Number: None

PATIENT
  Age: 75 Year
  Sex: Male
  Weight: 75 kg

DRUGS (16)
  1. FLUOROURACIL [Suspect]
     Active Substance: FLUOROURACIL
     Indication: Colorectal cancer
  2. OXALIPLATIN [Suspect]
     Active Substance: OXALIPLATIN
     Indication: Colorectal cancer
  3. FOLIC ACID [Suspect]
     Active Substance: FOLIC ACID
     Indication: Colorectal cancer
  4. AMLODIPINE [Concomitant]
     Active Substance: AMLODIPINE BESYLATE
  5. ASPIRIN [Concomitant]
     Active Substance: ASPIRIN
  6. DEXAMETHASONE [Concomitant]
     Active Substance: DEXAMETHASONE
     Route: 014
  7. FERROUS SULFATE [Concomitant]
     Active Substance: FERROUS SULFATE
  8. FRAGMIN [Concomitant]
     Active Substance: DALTEPARIN SODIUM
     Route: 042
  9. FILGRASTIM [Concomitant]
     Active Substance: FILGRASTIM
     Dosage: SINGLE USE PRE-FILLED SYRINGE
     Route: 042
  10. JANUVIA [Concomitant]
     Active Substance: SITAGLIPTIN PHOSPHATE
  11. LORAZEPAM [Concomitant]
     Active Substance: LORAZEPAM
  12. ONDANSETRON [Concomitant]
     Active Substance: ONDANSETRON
  13. PANTOPRAZOLE SODIUM [Concomitant]
     Active Substance: PANTOPRAZOLE SODIUM
  14. ROSUVASTATIN [Concomitant]
     Active Substance: ROSUVASTATIN
  15. TELMISARTAN [Concomitant]
     Active Substance: TELMISARTAN
  16. VITAMIN D [Concomitant]
     Active Substance: VITAMIN D NOS

REACTIONS (1)
  - Febrile neutropenia [Recovered/Resolved]
